FAERS Safety Report 12777442 (Version 1)
Quarter: 2016Q3

REPORT INFORMATION
  Report Type: Spontaneous
  Country: US (occurrence: US)
  Receive Date: 20160924
  Receipt Date: 20160924
  Transmission Date: 20161109
  Serious: No
  Sender: FDA-Public Use
  Company Number: US-TEVA-651428USA

PATIENT
  Sex: Female

DRUGS (1)
  1. CARBAMAZEPINE. [Suspect]
     Active Substance: CARBAMAZEPINE
     Indication: SEIZURE
     Route: 065

REACTIONS (7)
  - Agitation [Unknown]
  - Dizziness [Recovering/Resolving]
  - Sleep disorder [Recovering/Resolving]
  - Tinnitus [Recovering/Resolving]
  - Depression [Unknown]
  - Irritability [Unknown]
  - Product substitution issue [Unknown]
